FAERS Safety Report 7985731-9 (Version None)
Quarter: 2011Q4

REPORT INFORMATION
  Report Type: 
  Country: None (occurrence: None)
  Receive Date: 20111216
  Receipt Date: 20111216
  Transmission Date: 20120403
  Serious: Yes (Life-Threatening, Hospitalization, Disabling)
  Sender: FDA-Public Use
  Company Number: None

PATIENT
  Age: 84 Year
  Sex: Female
  Weight: 67.4 kg

DRUGS (1)
  1. IODINE CONTRAST [Suspect]
     Indication: SCAN WITH CONTRAST
     Dosage: STANDARD
     Route: 042
     Dates: start: 20111210, end: 20111210

REACTIONS (6)
  - SEPTIC SHOCK [None]
  - BLOOD CREATININE INCREASED [None]
  - BLOOD UREA INCREASED [None]
  - CONTRAST MEDIA REACTION [None]
  - STEVENS-JOHNSON SYNDROME [None]
  - CARBON DIOXIDE DECREASED [None]
